FAERS Safety Report 24986682 (Version 4)
Quarter: 2025Q2

REPORT INFORMATION
  Report Type: Report from Study
  Country: CO (occurrence: CO)
  Receive Date: 20250219
  Receipt Date: 20250514
  Transmission Date: 20250716
  Serious: Yes (Hospitalization)
  Sender: NOVARTIS
  Company Number: CO-002147023-NVSC2025CO007994

PATIENT
  Age: 62 Year
  Sex: Male
  Weight: 70 kg

DRUGS (1)
  1. COSENTYX [Suspect]
     Active Substance: SECUKINUMAB
     Indication: Psoriatic arthropathy
     Dosage: 300 MG, QMO
     Route: 058
     Dates: start: 20181007, end: 20241212

REACTIONS (7)
  - Platelet count decreased [Unknown]
  - Blood glucose increased [Unknown]
  - Arthritis infective [Not Recovered/Not Resolved]
  - Unevaluable event [Recovered/Resolved]
  - Blood glucose decreased [Recovered/Resolved]
  - Hepatic steatosis [Recovered/Resolved]
  - Hypertension [Recovered/Resolved]

NARRATIVE: CASE EVENT DATE: 20250206
